FAERS Safety Report 13133400 (Version 1)
Quarter: 2017Q1

REPORT INFORMATION
  Report Type: Spontaneous
  Country: US (occurrence: US)
  Receive Date: 20170119
  Receipt Date: 20170119
  Transmission Date: 20170428
  Serious: No
  Sender: FDA-Public Use
  Company Number: None

PATIENT
  Age: 20 Year
  Sex: Female
  Weight: 78.75 kg

DRUGS (11)
  1. CLARITIN [Concomitant]
     Active Substance: LORATADINE
  2. VIT. D [Concomitant]
  3. FLONASE [Concomitant]
     Active Substance: FLUTICASONE PROPIONATE
  4. IBUPROFEN. [Concomitant]
     Active Substance: IBUPROFEN
  5. VYVANSE [Suspect]
     Active Substance: LISDEXAMFETAMINE DIMESYLATE
     Indication: FATIGUE
     Dosage: ?          QUANTITY:1 CAPSULE(S);?
     Route: 048
  6. SKELAXIN [Concomitant]
     Active Substance: METAXALONE
  7. XOPENEX [Concomitant]
     Active Substance: LEVALBUTEROL HYDROCHLORIDE
  8. VYVANSE [Suspect]
     Active Substance: LISDEXAMFETAMINE DIMESYLATE
     Indication: ATTENTION DEFICIT/HYPERACTIVITY DISORDER
     Dosage: ?          QUANTITY:1 CAPSULE(S);?
     Route: 048
  9. TYLENOL [Concomitant]
     Active Substance: ACETAMINOPHEN
  10. LYRICA [Concomitant]
     Active Substance: PREGABALIN
  11. AVIANNE [Concomitant]

REACTIONS (4)
  - Respiratory rate increased [None]
  - Irregular breathing [None]
  - Hypopnoea [None]
  - Compulsions [None]

NARRATIVE: CASE EVENT DATE: 20170104
